FAERS Safety Report 5261397-6 (Version None)
Quarter: 2007Q1

REPORT INFORMATION
  Report Type: 
  Country: None (occurrence: None)
  Receive Date: 20070307
  Receipt Date: 20070227
  Transmission Date: 20070707
  Serious: Yes (Hospitalization)
  Sender: FDA-Public Use
  Company Number: 163-20785-07011532

PATIENT
  Age: 66 Year
  Sex: Male
  Weight: 75.7507 kg

DRUGS (10)
  1. THALOMID [Suspect]
     Indication: MULTIPLE MYELOMA
     Dosage: 50 MG, 1 IN 1 D, ORAL
     Route: 048
     Dates: start: 20061121
  2. GLUCOSAMINE [Concomitant]
  3. CALCIUM [Concomitant]
  4. VITAMIN D [Concomitant]
  5. COLACE (DOCUSATE SODIUM) [Concomitant]
  6. HYZAAR [Concomitant]
  7. LIPITOR [Concomitant]
  8. ACTONEL [Concomitant]
  9. KEFLEX [Concomitant]
  10. LORTAB [Concomitant]

REACTIONS (1)
  - HIP ARTHROPLASTY [None]
